FAERS Safety Report 12731740 (Version 1)
Quarter: 2016Q3

REPORT INFORMATION
  Report Type: Spontaneous
  Country: US (occurrence: US)
  Receive Date: 20160912
  Receipt Date: 20160912
  Transmission Date: 20161109
  Serious: No
  Sender: FDA-Public Use
  Company Number: None

PATIENT

DRUGS (1)
  1. POLYVIFLOR 0.25, LIQUID ZYLERA [Suspect]
     Active Substance: FERROUS SULFATE\SODIUM FLUORIDE\VITAMINS

REACTIONS (2)
  - Product packaging issue [None]
  - Product label issue [None]
